FAERS Safety Report 6689254-9 (Version None)
Quarter: 2010Q2

REPORT INFORMATION
  Report Type: 
  Country: None (occurrence: None)
  Receive Date: 20100409
  Receipt Date: 20100331
  Transmission Date: 20101027
  Serious: Yes (Hospitalization, Other)
  Sender: FDA-Public Use
  Company Number: 2010SP013916

PATIENT
  Age: 46 Year
  Sex: Female

DRUGS (2)
  1. PEG-INTRON [Suspect]
     Indication: HEPATITIS C
     Dosage: SC
     Route: 058
     Dates: start: 20100125
  2. RIBASPHERE [Suspect]
     Indication: HEPATITIS C
     Dosage: PO
     Route: 048
     Dates: start: 20100125

REACTIONS (5)
  - ALOPECIA [None]
  - ASTHENIA [None]
  - DELIRIUM [None]
  - PNEUMONIA STAPHYLOCOCCAL [None]
  - UNRESPONSIVE TO STIMULI [None]
